FAERS Safety Report 23174057 (Version 1)
Quarter: 2023Q4

REPORT INFORMATION
  Report Type: Spontaneous
  Country: US (occurrence: None)
  Receive Date: 20231112
  Receipt Date: 20231112
  Transmission Date: 20240110
  Serious: Yes (Other)
  Sender: FDA-Public Use
  Company Number: US-ENDO-CASE-0040704

PATIENT

DRUGS (3)
  1. PERCOCET [Suspect]
     Active Substance: ACETAMINOPHEN\OXYCODONE HYDROCHLORIDE
  2. OXYCODONE [Suspect]
     Active Substance: OXYCODONE
  3. HYDROCODONE [Suspect]
     Active Substance: HYDROCODONE

REACTIONS (5)
  - Constipation [Unknown]
  - Weight increased [Unknown]
  - Hernia [Unknown]
  - Gallbladder disorder [Unknown]
  - Dependence [Unknown]
